FAERS Safety Report 6084311-2 (Version None)
Quarter: 2009Q1

REPORT INFORMATION
  Report Type: 
  Country: None (occurrence: None)
  Receive Date: 20090217
  Receipt Date: 20090217
  Transmission Date: 20090719
  Serious: Yes (Hospitalization)
  Sender: FDA-Public Use
  Company Number: None

PATIENT
  Sex: Male
  Weight: 71.6683 kg

DRUGS (3)
  1. GEMCITABINE [Suspect]
     Indication: PANCREATIC CARCINOMA
     Dosage: AS ABOVE
     Dates: start: 20081215
  2. RADIATION 40CGY BID DAYS 1,2,8,9 [Suspect]
     Indication: PANCREATIC CARCINOMA
     Dosage: AS ABOVE
     Dates: start: 20081215
  3. TARCEVA [Suspect]
     Indication: PANCREATIC CARCINOMA
     Dosage: AS ABOVE
     Dates: start: 20081215

REACTIONS (3)
  - DISCOMFORT [None]
  - PNEUMONIA [None]
  - URINARY TRACT DISORDER [None]
